FAERS Safety Report 6109061-5 (Version None)
Quarter: 2009Q1

REPORT INFORMATION
  Report Type: 
  Country: None (occurrence: None)
  Receive Date: 20090309
  Receipt Date: 20090309
  Transmission Date: 20090719
  Serious: Yes (Other)
  Sender: FDA-Public Use
  Company Number: None

PATIENT
  Age: 77 Year
  Sex: Female
  Weight: 63.5036 kg

DRUGS (1)
  1. ACTONEL [Suspect]
     Indication: OSTEOPOROSIS
     Dates: start: 20081225

REACTIONS (4)
  - GASTROINTESTINAL PAIN [None]
  - NAUSEA [None]
  - OESOPHAGEAL PAIN [None]
  - VOMITING PROJECTILE [None]
